FAERS Safety Report 25125830 (Version 2)
Quarter: 2025Q2

REPORT INFORMATION
  Report Type: Spontaneous
  Country: US (occurrence: US)
  Receive Date: 20250326
  Receipt Date: 20250404
  Transmission Date: 20250716
  Serious: Yes (Other)
  Sender: TEVA
  Company Number: US-TEVA-VS-3311467

PATIENT
  Age: 2 Year
  Sex: Male

DRUGS (8)
  1. DEXAMETHASONE [Suspect]
     Active Substance: DEXAMETHASONE
     Indication: Medulloblastoma
     Route: 065
     Dates: end: 202304
  2. ETOPOSIDE [Concomitant]
     Active Substance: ETOPOSIDE
     Indication: Medulloblastoma
     Route: 065
     Dates: end: 202304
  3. VINCRISTINE [Concomitant]
     Active Substance: VINCRISTINE
     Indication: Medulloblastoma
     Route: 065
     Dates: end: 202304
  4. CARBOPLATIN [Suspect]
     Active Substance: CARBOPLATIN
     Indication: Medulloblastoma
     Route: 065
     Dates: end: 202304
  5. THIOTEPA [Concomitant]
     Active Substance: THIOTEPA
     Indication: Medulloblastoma
     Route: 065
     Dates: end: 202304
  6. METHOTREXATE [Concomitant]
     Active Substance: METHOTREXATE
     Indication: Medulloblastoma
     Route: 065
     Dates: end: 202304
  7. CYCLOPHOSPHAMIDE [Concomitant]
     Active Substance: CYCLOPHOSPHAMIDE
     Indication: Medulloblastoma
     Route: 065
     Dates: end: 202304
  8. CISPLATIN [Suspect]
     Active Substance: CISPLATIN
     Indication: Medulloblastoma
     Route: 065
     Dates: end: 202304

REACTIONS (1)
  - Epidural lipomatosis [Recovered/Resolved]
